FAERS Safety Report 11181283 (Version 2)
Quarter: 2015Q2

REPORT INFORMATION
  Report Type: Spontaneous
  Country: JP (occurrence: JP)
  Receive Date: 20150611
  Receipt Date: 20150618
  Transmission Date: 20150821
  Serious: Yes (Hospitalization)
  Sender: FDA-Public Use
  Company Number: JP-ASTRAZENECA-2015SE55322

PATIENT
  Age: 68 Year
  Sex: Female

DRUGS (6)
  1. VE-NICOTINATE [Concomitant]
     Route: 048
  2. ENCERON [Concomitant]
     Route: 048
  3. ALINAMIN [Concomitant]
  4. CRESTOR [Suspect]
     Active Substance: ROSUVASTATIN CALCIUM
     Indication: DYSLIPIDAEMIA
     Route: 048
  5. ETIZOLAM [Concomitant]
     Active Substance: ETIZOLAM
  6. COBALOKININ [Concomitant]
     Active Substance: LOXOPROFEN SODIUM

REACTIONS (2)
  - Hepatitis acute [Recovered/Resolved]
  - Haemorrhagic ascites [Recovered/Resolved]
